APPROVED DRUG PRODUCT: ACETAMINOPHEN
Active Ingredient: ACETAMINOPHEN
Strength: 650MG
Dosage Form/Route: SUPPOSITORY;RECTAL
Application: A071011 | Product #001
Applicant: ACINO PRODUCTS LLC
Approved: May 12, 1987 | RLD: No | RS: No | Type: DISCN